FAERS Safety Report 8772903 (Version 1)
Quarter: 2012Q4

REPORT INFORMATION
  Report Type: 
  Country: JP (occurrence: JP)
  Receive Date: 20120907
  Receipt Date: 20120907
  Transmission Date: 20130627
  Serious: Yes (Other)
  Sender: FDA-Public Use
  Company Number: JP-JNJFOC-20120400793

PATIENT
  Age: 81 Year
  Sex: Male
  Weight: 45 kg

DRUGS (5)
  1. REMINYL [Suspect]
     Indication: DEMENTIA ALZHEIMER^S TYPE
     Route: 048
     Dates: start: 20120313, end: 20120323
  2. METHYCOBAL [Concomitant]
     Indication: VITAMIN B1 DECREASED
     Route: 048
     Dates: start: 20120313
  3. FOLIAMIN [Concomitant]
     Indication: BLOOD FOLATE DECREASED
     Route: 048
     Dates: start: 20120313
  4. UNISIA [Concomitant]
     Indication: HYPERTENSION
     Route: 048
     Dates: start: 20120313
  5. ZYLORIC [Concomitant]
     Indication: HYPERURICAEMIA
     Route: 048
     Dates: start: 20120313

REACTIONS (3)
  - Loss of consciousness [Recovered/Resolved]
  - Muscle spasms [Recovered/Resolved]
  - Insomnia [Unknown]
